FAERS Safety Report 21643802 (Version 2)
Quarter: 2022Q4

REPORT INFORMATION
  Report Type: Report from Study
  Country: US (occurrence: US)
  Receive Date: 20221125
  Receipt Date: 20221206
  Transmission Date: 20230113
  Serious: Yes (Life-Threatening)
  Sender: FDA-Public Use
  Company Number: US-AstraZeneca-2022A365736

PATIENT
  Age: 52 Year
  Sex: Male
  Weight: 72.6 kg

DRUGS (2)
  1. FAM-TRASTUZUMAB DERUXTECAN-NXKI [Suspect]
     Active Substance: FAM-TRASTUZUMAB DERUXTECAN-NXKI
     Indication: Neoplasm
     Dosage: 410 MG
     Route: 065
     Dates: start: 20220922, end: 20221012
  2. CERALASERTIB [Suspect]
     Active Substance: CERALASERTIB
     Indication: Neoplasm
     Dosage: 1680 MG
     Route: 048
     Dates: start: 20220922, end: 20221012

REACTIONS (1)
  - CD4 lymphocytes decreased [Recovering/Resolving]

NARRATIVE: CASE EVENT DATE: 20221019
